FAERS Safety Report 6878438-2 (Version None)
Quarter: 2010Q3

REPORT INFORMATION
  Report Type: 
  Country: None (occurrence: None)
  Receive Date: 20100728
  Receipt Date: 20100726
  Transmission Date: 20110219
  Serious: Yes (Other)
  Sender: FDA-Public Use
  Company Number: A0872462A

PATIENT
  Age: 51 Year
  Sex: Female

DRUGS (1)
  1. ALLI [Suspect]
     Indication: WEIGHT LOSS DIET
     Route: 048

REACTIONS (4)
  - CONDITION AGGRAVATED [None]
  - HAEMORRHAGE SUBCUTANEOUS [None]
  - INCREASED TENDENCY TO BRUISE [None]
  - SKIN ATROPHY [None]
